FAERS Safety Report 4861679-3 (Version None)
Quarter: 2005Q4

REPORT INFORMATION
  Report Type: 
  Country: None (occurrence: None)
  Receive Date: 20051130
  Receipt Date: 20050909
  Transmission Date: 20060501
  Serious: Yes (Hospitalization, Other)
  Sender: FDA-Public Use
  Company Number: 2004239249US

PATIENT
  Age: 62 Year
  Sex: Female
  Weight: 68.0396 kg

DRUGS (6)
  1. ZYVOX [Suspect]
     Indication: STAPHYLOCOCCAL INFECTION
     Dosage: 1200 MG (600 MG,2 IN 1 D),INTRAVENOUS
     Route: 042
     Dates: start: 20040706, end: 20040707
  2. ZYVOX [Suspect]
     Indication: STAPHYLOCOCCAL INFECTION
     Dosage: 1200 MG (600 MG,2 IN 1 D),ORAL
     Route: 048
     Dates: start: 20040708, end: 20040818
  3. VANCOMYCIN [Concomitant]
  4. ANCEF [Concomitant]
  5. LIPITOR [Concomitant]
  6. EVISTA [Concomitant]

REACTIONS (3)
  - BONE MARROW FAILURE [None]
  - HAEMOGLOBIN DECREASED [None]
  - RED BLOOD CELL COUNT DECREASED [None]
